FAERS Safety Report 7592959-9 (Version None)
Quarter: 2011Q3

REPORT INFORMATION
  Report Type: 
  Country: None (occurrence: None)
  Receive Date: 20110706
  Receipt Date: 20110630
  Transmission Date: 20111222
  Serious: Yes (Hospitalization)
  Sender: FDA-Public Use
  Company Number: US-GLAXOSMITHKLINE-A0923380A

PATIENT
  Age: 58 Year
  Sex: Male

DRUGS (2)
  1. AVANDIA [Suspect]
     Indication: DIABETES MELLITUS
     Route: 048
     Dates: start: 20060112, end: 20070822
  2. AVANDAMET [Suspect]
     Indication: DIABETES MELLITUS
     Route: 048
     Dates: start: 20030827, end: 20060112

REACTIONS (4)
  - MYOCARDIAL INFARCTION [None]
  - PERIPHERAL ARTERY ANEURYSM [None]
  - MYOCARDIAL ISCHAEMIA [None]
  - ILIAC ARTERY OCCLUSION [None]
